FAERS Safety Report 21917699 (Version 4)
Quarter: 2023Q1

REPORT INFORMATION
  Report Type: Spontaneous
  Country: CA (occurrence: CA)
  Receive Date: 20230127
  Receipt Date: 20230327
  Transmission Date: 20230418
  Serious: Yes (Hospitalization, Other)
  Sender: FDA-Public Use
  Company Number: CA-CELLTRION INC.-2022CA013193

PATIENT

DRUGS (15)
  1. INFLIXIMAB [Suspect]
     Active Substance: INFLIXIMAB
     Indication: Rheumatoid arthritis
     Dosage: 120 MG/ML SC, Q2WEEKS
     Route: 058
     Dates: start: 20220804
  2. INFLIXIMAB [Suspect]
     Active Substance: INFLIXIMAB
     Dosage: 120 MG/ML SC, Q2WEEKS
     Route: 058
     Dates: start: 20230227
  3. REMICADE [Suspect]
     Active Substance: INFLIXIMAB
     Indication: Product used for unknown indication
     Dosage: 3MG/KG IV INDUCTION DOSES WEEK 0 AND WEEK 2 PRESCRIBED
     Route: 058
  4. AMLODIPINE [Concomitant]
     Active Substance: AMLODIPINE BESYLATE
  5. BISOPROLOL [Concomitant]
     Active Substance: BISOPROLOL
  6. VITAMIN D NOS [Concomitant]
     Active Substance: VITAMIN D NOS
  7. FERROUS SULFATE [Concomitant]
     Active Substance: FERROUS SULFATE
  8. HYDROXYCHLOROQUINE [Concomitant]
     Active Substance: HYDROXYCHLOROQUINE
  9. LEUCOVORIN [Concomitant]
     Active Substance: LEUCOVORIN
  10. METHOTREXATE [Concomitant]
     Active Substance: METHOTREXATE
  11. PANTOPRAZOLE [Concomitant]
     Active Substance: PANTOPRAZOLE
  12. PAROXETINE [Concomitant]
     Active Substance: PAROXETINE
  13. ROSUVASTATIN [Concomitant]
     Active Substance: ROSUVASTATIN
  14. ZOPICLONE [Concomitant]
     Active Substance: ZOPICLONE
  15. CELECOXIB [Concomitant]
     Active Substance: CELECOXIB
     Dosage: UNK, PRN

REACTIONS (4)
  - Surgery [Unknown]
  - Lung neoplasm malignant [Unknown]
  - Pneumonia [Unknown]
  - Headache [Unknown]

NARRATIVE: CASE EVENT DATE: 20221201
